FAERS Safety Report 12452825 (Version 1)
Quarter: 2016Q2

REPORT INFORMATION
  Report Type: Report from Study
  Country: JP (occurrence: JP)
  Receive Date: 20160609
  Receipt Date: 20160609
  Transmission Date: 20160815
  Serious: Yes (Life-Threatening, Other)
  Sender: FDA-Public Use
  Company Number: JP-009507513-1606JPN003017

PATIENT

DRUGS (2)
  1. DEXAMETHASONE. [Suspect]
     Active Substance: DEXAMETHASONE
     Indication: PLASMA CELL MYELOMA
     Dosage: WEEKLY ON DAYS 1, 8, 15 AND 22 OF EACH 28-DAY CYCLE. STARTING DOSE BASED ON AGE: 20-40MG/DAY
  2. LENALIDOMIDE [Suspect]
     Active Substance: LENALIDOMIDE
     Indication: PLASMA CELL MYELOMA
     Dosage: STARTING DOSE WAS ADJUSTED BASED ON PATIENT RENAL FUNCTION , CYCLICAL

REACTIONS (22)
  - Anaemia [Unknown]
  - Lymphopenia [Unknown]
  - Deep vein thrombosis [Unknown]
  - Interstitial lung disease [Unknown]
  - Pneumonia aspiration [Unknown]
  - Presyncope [Unknown]
  - Lower gastrointestinal haemorrhage [Unknown]
  - Hyponatraemia [Unknown]
  - Thrombocytopenia [Unknown]
  - Hypophosphataemia [Unknown]
  - Toxic skin eruption [Unknown]
  - Tumour lysis syndrome [Unknown]
  - Hypertension [Unknown]
  - Pneumonia [Unknown]
  - Rash [Unknown]
  - Neutropenia [Unknown]
  - Hypoalbuminaemia [Unknown]
  - Hepatic function abnormal [Unknown]
  - Leukopenia [Unknown]
  - Coronary artery stenosis [Unknown]
  - Urinary tract infection [Unknown]
  - Cardiac failure acute [Unknown]
